FAERS Safety Report 26200706 (Version 1)
Quarter: 2025Q4

REPORT INFORMATION
  Report Type: Spontaneous
  Country: EU (occurrence: EU)
  Receive Date: 20251226
  Receipt Date: 20251226
  Transmission Date: 20260118
  Serious: Yes (Hospitalization, Other)
  Sender: JOHNSON AND JOHNSON
  Company Number: EU-PMCS-2025001299

PATIENT
  Age: 67 Year
  Sex: Male

DRUGS (12)
  1. FENTANYL [Suspect]
     Active Substance: FENTANYL
     Indication: Analgesic therapy
     Route: 062
  2. ENCORAFENIB [Suspect]
     Active Substance: ENCORAFENIB
     Indication: Off label use
     Dosage: 300 MG, QD (1/DAY)
  3. ENCORAFENIB [Suspect]
     Active Substance: ENCORAFENIB
     Indication: Plasma cell myeloma
  4. BINIMETINIB [Suspect]
     Active Substance: BINIMETINIB
     Indication: Off label use
     Dosage: 60 MG, DIVIDED INTO TWO DAILY ADMINISTRATIONS
  5. BINIMETINIB [Suspect]
     Active Substance: BINIMETINIB
     Indication: Plasma cell myeloma
     Dosage: 60 MG, DAILY
  6. ACYCLOVIR [Suspect]
     Active Substance: ACYCLOVIR
     Indication: Herpes virus infection
     Dosage: 400 MG/DAY
  7. ACYCLOVIR [Suspect]
     Active Substance: ACYCLOVIR
     Indication: Prophylaxis
  8. COTRIMOXAZOLE [Suspect]
     Active Substance: SULFAMETHOXAZOLE\TRIMETHOPRIM
     Indication: Pneumocystis jirovecii pneumonia
     Dosage: 480 MG/DAY
  9. COTRIMOXAZOLE [Suspect]
     Active Substance: SULFAMETHOXAZOLE\TRIMETHOPRIM
     Indication: Prophylaxis
  10. PREGABALIN [Suspect]
     Active Substance: PREGABALIN
     Indication: Analgesic therapy
  11. METAMIZOLE [Suspect]
     Active Substance: METAMIZOLE
     Indication: Analgesic therapy
  12. FENTANYL [Suspect]
     Active Substance: FENTANYL
     Indication: Analgesic therapy

REACTIONS (6)
  - Acute kidney injury [Unknown]
  - Dermatitis exfoliative generalised [Recovered/Resolved]
  - Thrombocytopenia [Unknown]
  - Liver disorder [Unknown]
  - Product use in unapproved indication [Unknown]
  - Off label use [Unknown]
